FAERS Safety Report 18460615 (Version 1)
Quarter: 2020Q4

REPORT INFORMATION
  Report Type: Report from Study
  Country: US (occurrence: US)
  Receive Date: 20201103
  Receipt Date: 20201103
  Transmission Date: 20210114
  Serious: Yes (Life-Threatening)
  Sender: FDA-Public Use
  Company Number: US-BIOGEN-2020BI00930142

PATIENT
  Sex: Female

DRUGS (3)
  1. TECFIDERA [Suspect]
     Active Substance: DIMETHYL FUMARATE
     Route: 065
     Dates: start: 202010
  2. TECFIDERA [Suspect]
     Active Substance: DIMETHYL FUMARATE
     Indication: MULTIPLE SCLEROSIS
     Route: 065
     Dates: start: 20200921
  3. ESCITALOPRAM [Suspect]
     Active Substance: ESCITALOPRAM OXALATE
     Indication: PANIC ATTACK
     Route: 065

REACTIONS (29)
  - Anxiety [Unknown]
  - Feeling cold [Unknown]
  - Dizziness [Unknown]
  - Productive cough [Unknown]
  - Asthenia [Unknown]
  - Drug ineffective [Unknown]
  - Confusional state [Unknown]
  - Tremor [Unknown]
  - Feeling of body temperature change [Unknown]
  - Dyspnoea [Unknown]
  - Mental disorder [Unknown]
  - Peripheral coldness [Unknown]
  - Heart rate irregular [Unknown]
  - Blood glucose decreased [Unknown]
  - Post procedural infection [Not Recovered/Not Resolved]
  - Hot flush [Unknown]
  - Balance disorder [Unknown]
  - Infection [Unknown]
  - Chest discomfort [Unknown]
  - Muscle tightness [Unknown]
  - Diarrhoea [Unknown]
  - Feeling hot [Unknown]
  - Frustration tolerance decreased [Unknown]
  - Nausea [Unknown]
  - Pruritus [Unknown]
  - Panic attack [Unknown]
  - Hyperhidrosis [Unknown]
  - Speech disorder [Unknown]
  - Abdominal pain upper [Recovered/Resolved]
